FAERS Safety Report 23143762 (Version 2)
Quarter: 2023Q4

REPORT INFORMATION
  Report Type: Spontaneous
  Country: RU (occurrence: RU)
  Receive Date: 20231103
  Receipt Date: 20231106
  Transmission Date: 20240110
  Serious: No
  Sender: FDA-Public Use
  Company Number: RU-SCALL-2023-EME-124341

PATIENT
  Sex: Male

DRUGS (1)
  1. DUTASTERIDE [Suspect]
     Active Substance: DUTASTERIDE
     Route: 065

REACTIONS (5)
  - Perineal disorder [Unknown]
  - Nocturia [Unknown]
  - Abdominal discomfort [Unknown]
  - Drug ineffective [Unknown]
  - Product complaint [Unknown]
